FAERS Safety Report 5633211-8 (Version None)
Quarter: 2008Q1

REPORT INFORMATION
  Report Type: 
  Country: None (occurrence: None)
  Receive Date: 20080215
  Receipt Date: 20080201
  Transmission Date: 20080703
  Serious: Yes (Hospitalization)
  Sender: FDA-Public Use
  Company Number: DSA_31409_2008

PATIENT
  Sex: Female

DRUGS (2)
  1. LORAZEPAM [Suspect]
     Dosage: (8-10 MG)  NOT THE PRESCRIBED AMOUNT. ORAL
     Route: 048
     Dates: start: 20080131, end: 20080131
  2. ETHANOL (ALCOHOL - ETHANOL) [Suspect]
     Dosage: (NOT THE PRESCRIBED AMOUNT) ORAL
     Route: 048
     Dates: start: 20080131, end: 20080131

REACTIONS (3)
  - INTENTIONAL OVERDOSE [None]
  - SUICIDE ATTEMPT [None]
  - TACHYCARDIA [None]
